FAERS Safety Report 7854690-1 (Version None)
Quarter: 2011Q4

REPORT INFORMATION
  Report Type: 
  Country: None (occurrence: None)
  Receive Date: 20111026
  Receipt Date: 20111011
  Transmission Date: 20120403
  Serious: Yes (Death)
  Sender: FDA-Public Use
  Company Number: US-WATSON-2011-16354

PATIENT
  Sex: Female

DRUGS (2)
  1. FENTANYL-100 [Suspect]
     Indication: PAIN
     Dosage: 12.5 MG
     Route: 062
  2. FENTANYL-50 [Suspect]
     Indication: PAIN
     Dosage: UNK
     Route: 062

REACTIONS (3)
  - TOXICITY TO VARIOUS AGENTS [None]
  - ANALGESIC DRUG LEVEL INCREASED [None]
  - OVERDOSE [None]
